FAERS Safety Report 24333448 (Version 2)
Quarter: 2025Q2

REPORT INFORMATION
  Report Type: Report from Study
  Country: DE (occurrence: DE)
  Receive Date: 20240918
  Receipt Date: 20250416
  Transmission Date: 20250717
  Serious: Yes (Congenital Anomaly, Other)
  Sender: UCB
  Company Number: DE-UCBSA-2024047750

PATIENT
  Age: 0 Year
  Sex: Male

DRUGS (1)
  1. CERTOLIZUMAB PEGOL [Suspect]
     Active Substance: CERTOLIZUMAB PEGOL
     Indication: Product used for unknown indication
     Dosage: 200 MILLIGRAM, EV 2 WEEKS(QOW)
     Route: 064
     Dates: start: 202101, end: 202403

REACTIONS (4)
  - Neonatal infection [Unknown]
  - Talipes [Not Recovered/Not Resolved]
  - Maternal exposure before pregnancy [Unknown]
  - Maternal exposure during pregnancy [Unknown]

NARRATIVE: CASE EVENT DATE: 20230926
